FAERS Safety Report 9692198 (Version 3)
Quarter: 2014Q1

REPORT INFORMATION
  Report Type: Report from Study
  Country: CA (occurrence: CA)
  Receive Date: 20131118
  Receipt Date: 20140108
  Transmission Date: 20141002
  Serious: Yes (Other)
  Sender: FDA-Public Use
  Company Number: CA-ROCHE-561358

PATIENT
  Age: 62 Year
  Sex: Female
  Weight: 70.3 kg

DRUGS (14)
  1. RITUXAN [Suspect]
     Indication: RHEUMATOID ARTHRITIS
     Route: 042
  2. RITUXAN [Suspect]
     Route: 042
  3. SOLU-MEDROL [Concomitant]
     Indication: PREMEDICATION
     Dosage: FORM: POWDER FOR SOLUTION
     Route: 030
  4. BENADRYL (CANADA) [Concomitant]
     Indication: PREMEDICATION
     Route: 065
  5. ACETAMINOPHEN [Concomitant]
     Indication: PREMEDICATION
     Route: 048
     Dates: start: 20070314, end: 20120813
  6. MELOXICAM [Concomitant]
  7. PREDNISONE [Concomitant]
  8. MACROBID [Concomitant]
  9. SIMVASTATIN [Concomitant]
  10. METHYLPREDNISOLONE [Concomitant]
     Route: 042
     Dates: start: 20120813, end: 20120813
  11. DIPHENHYDRAMINE HYDROCHLORIDE [Concomitant]
     Route: 048
     Dates: start: 20120813, end: 20120813
  12. VITAMIN C [Concomitant]
  13. ALENDRONATE [Concomitant]
  14. OMEGA 3 [Concomitant]

REACTIONS (5)
  - Infusion related reaction [Recovered/Resolved]
  - Headache [Not Recovered/Not Resolved]
  - Urinary tract infection [Unknown]
  - Local swelling [Unknown]
  - Nasopharyngitis [Not Recovered/Not Resolved]
